FAERS Safety Report 6270823-5 (Version None)
Quarter: 2009Q3

REPORT INFORMATION
  Report Type: 
  Country: None (occurrence: None)
  Receive Date: 20090716
  Receipt Date: 20090703
  Transmission Date: 20100115
  Serious: Yes (Other)
  Sender: FDA-Public Use
  Company Number: PHHY2009MX27373

PATIENT
  Age: 53 Year
  Sex: Male

DRUGS (2)
  1. DIOVAN HCT [Suspect]
     Indication: HYPERTENSION
     Dosage: 2 DF (80/12.5 MG)/ DAY
     Route: 048
     Dates: start: 20050601, end: 20090401
  2. DIOVAN HCT [Suspect]
     Dosage: 2 DF (80/12.5 MG)/ DAY
     Route: 048
     Dates: start: 20090630

REACTIONS (2)
  - HIATUS HERNIA [None]
  - PERITONITIS [None]
